FAERS Safety Report 4540927-3 (Version None)
Quarter: 2004Q4

REPORT INFORMATION
  Report Type: 
  Country: None (occurrence: None)
  Receive Date: 20041229
  Receipt Date: 20041215
  Transmission Date: 20050328
  Serious: Yes (Hospitalization)
  Sender: FDA-Public Use
  Company Number: FR-GLAXOSMITHKLINE-B0361810A

PATIENT
  Age: 81 Year
  Sex: Male

DRUGS (15)
  1. AUGMENTIN '125' [Suspect]
     Indication: ILL-DEFINED DISORDER
     Dosage: 2G PER DAY
     Route: 042
     Dates: start: 20041031, end: 20041110
  2. TEGADERM DRESSING [Suspect]
  3. AVLOCARDYL [Concomitant]
     Dates: start: 20000101
  4. MOPRAL [Concomitant]
     Dates: start: 20000101
  5. LASILIX [Concomitant]
     Dates: start: 20000101
  6. CORDARONE [Concomitant]
     Dates: start: 20000101
  7. ALDACTONE [Concomitant]
     Dates: start: 20000101, end: 20041001
  8. DI ANTALVIC [Concomitant]
     Dates: start: 20000101, end: 20041001
  9. FUNGIZONE [Concomitant]
     Dates: start: 20041001
  10. SMECTA [Concomitant]
     Dates: start: 20041001
  11. RENAGEL [Concomitant]
     Dates: start: 20041001
  12. CALCIDIA [Concomitant]
     Dates: start: 20041001
  13. MAG 2 [Concomitant]
     Dates: start: 20041001
  14. DAFALGAN [Concomitant]
     Dates: start: 20041001
  15. KAYEXALATE [Concomitant]
     Dates: start: 20041001

REACTIONS (2)
  - APPLICATION SITE DERMATITIS [None]
  - ECZEMA ASTEATOTIC [None]
